FAERS Safety Report 7556606-4 (Version None)
Quarter: 2011Q2

REPORT INFORMATION
  Report Type: 
  Country: None (occurrence: None)
  Receive Date: 20110615
  Receipt Date: 20110615
  Transmission Date: 20111010
  Serious: Yes (Other)
  Sender: FDA-Public Use
  Company Number: None

PATIENT
  Age: 54 Year
  Sex: Female
  Weight: 83.9154 kg

DRUGS (1)
  1. GEMFIBROZIL [Suspect]
     Indication: HYPERLIPIDAEMIA
     Dosage: 600MG 2X DAILY PO
     Route: 048
     Dates: start: 20110609, end: 20110613

REACTIONS (9)
  - MIGRAINE [None]
  - PRODUCT SUBSTITUTION ISSUE [None]
  - PRODUCT ODOUR ABNORMAL [None]
  - PRODUCT COUNTERFEIT [None]
  - SWELLING [None]
  - NAUSEA [None]
  - ARTHRALGIA [None]
  - POISONING [None]
  - PRODUCT TASTE ABNORMAL [None]
